FAERS Safety Report 8034292-7 (Version None)
Quarter: 2012Q1

REPORT INFORMATION
  Report Type: 
  Country: None (occurrence: None)
  Receive Date: 20120110
  Receipt Date: 20120104
  Transmission Date: 20120608
  Serious: Yes (Hospitalization, Disabling, Other)
  Sender: FDA-Public Use
  Company Number: PHEH2011US010264

PATIENT
  Sex: Female
  Weight: 92.7 kg

DRUGS (6)
  1. ZOMETA [Suspect]
     Indication: METASTASES TO BONE
     Dosage: 4 MG, EVERY THREE WEEKS
     Route: 042
     Dates: start: 20060101, end: 20110809
  2. MULTI-VITAMINS [Concomitant]
     Route: 048
     Dates: start: 20100120
  3. VICODIN [Concomitant]
     Indication: PAIN
     Dosage: 1 DF, UNK
     Route: 048
     Dates: start: 20111220
  4. IBUPROFEN [Concomitant]
     Indication: PAIN IN JAW
     Dosage: 800 MG, DAILY PRN
     Route: 048
     Dates: start: 20110628
  5. IRON [Concomitant]
     Indication: IRON DEFICIENCY
     Route: 048
     Dates: start: 20100120
  6. HERCEPTIN [Concomitant]
     Indication: BREAST CANCER
     Dosage: 520 MG, TIW
     Route: 042
     Dates: start: 20050101

REACTIONS (7)
  - PAIN IN JAW [None]
  - GINGIVAL INFECTION [None]
  - ABSCESS JAW [None]
  - EXPOSED BONE IN JAW [None]
  - OSTEONECROSIS OF JAW [None]
  - APHAGIA [None]
  - GINGIVAL SWELLING [None]
